FAERS Safety Report 9536654 (Version 1)
Quarter: 2013Q3

REPORT INFORMATION
  Report Type: Spontaneous
  Country: US (occurrence: US)
  Receive Date: 20130919
  Receipt Date: 20130919
  Transmission Date: 20140515
  Serious: Yes (Other)
  Sender: FDA-Public Use
  Company Number: US-BAYER-2013-112881

PATIENT
  Age: 78 Year
  Sex: Female
  Weight: 63 kg

DRUGS (5)
  1. CAMPHO-PHENIQUE ANTISEPTIC LIQUID [Suspect]
     Dosage: UNK
     Route: 061
     Dates: start: 20130915, end: 20130915
  2. FAMOTIDINE [Concomitant]
  3. LEVOTHYROXINE [Concomitant]
  4. TRIAMTERENE [Concomitant]
  5. METOPROLOL [Concomitant]

REACTIONS (12)
  - Anaphylactic shock [Recovered/Resolved]
  - Hypersensitivity [Not Recovered/Not Resolved]
  - Dermatitis allergic [Not Recovered/Not Resolved]
  - Application site pain [Not Recovered/Not Resolved]
  - Swelling face [Not Recovered/Not Resolved]
  - Skin swelling [Not Recovered/Not Resolved]
  - Headache [Not Recovered/Not Resolved]
  - Paraesthesia [Not Recovered/Not Resolved]
  - Musculoskeletal stiffness [Not Recovered/Not Resolved]
  - Dermatitis contact [Not Recovered/Not Resolved]
  - Urticaria [Not Recovered/Not Resolved]
  - Off label use [None]
